FAERS Safety Report 11350032 (Version 1)
Quarter: 2015Q3

REPORT INFORMATION
  Report Type: Spontaneous
  Country: None (occurrence: None)
  Receive Date: 20150806
  Receipt Date: 20150806
  Transmission Date: 20151125
  Serious: Yes (Other)
  Sender: FDA-Public Use
  Company Number: None

PATIENT
  Age: 27 Year
  Sex: Female
  Weight: 56 kg

DRUGS (1)
  1. TABLET CABGOLIN 0.25 SUN PHARMA LABORATORIES LTD [Suspect]
     Active Substance: CABERGOLINE
     Indication: LACTATION DISORDER
     Dosage: 2 PILLS IN WEEK FR 4 WEEKS TWICE IN 1 WEEK
     Route: 048

REACTIONS (4)
  - Swelling [None]
  - Weight increased [None]
  - Pregnancy [None]
  - Fatigue [None]

NARRATIVE: CASE EVENT DATE: 20150801
